FAERS Safety Report 6453199-X (Version None)
Quarter: 2009Q4

REPORT INFORMATION
  Report Type: 
  Country: None (occurrence: None)
  Receive Date: 20091123
  Receipt Date: 20091123
  Transmission Date: 20100525
  Serious: No
  Sender: FDA-Public Use
  Company Number: None

PATIENT
  Age: 37 Year
  Sex: Male
  Weight: 74.3899 kg

DRUGS (1)
  1. OXALIPLATIN (ELOXATIN) [Suspect]
     Dosage: INTRAVENOUS;160.0
     Dates: start: 20091109, end: 20091109

REACTIONS (4)
  - FLUSHING [None]
  - HYPERHIDROSIS [None]
  - PARAESTHESIA [None]
  - TACHYCARDIA [None]
